FAERS Safety Report 4732457-0 (Version None)
Quarter: 2005Q3

REPORT INFORMATION
  Report Type: 
  Country: None (occurrence: None)
  Receive Date: 20050801
  Receipt Date: 20050718
  Transmission Date: 20060218
  Serious: Yes (Hospitalization)
  Sender: FDA-Public Use
  Company Number: FABR-11170

PATIENT
  Age: 14 Year
  Sex: Male
  Weight: 152 kg

DRUGS (10)
  1. FABRAZYME [Suspect]
     Indication: FABRY'S DISEASE
     Dosage: 1 MG/KG Q2WKS IV
     Route: 042
     Dates: start: 20030703
  2. DOXYCYCLINE [Suspect]
  3. MOTRIN [Concomitant]
  4. NEURONTIN [Concomitant]
  5. NEXIUM [Concomitant]
  6. ZYRTEC [Concomitant]
  7. SINGULAIR [Concomitant]
  8. PULMICORT [Concomitant]
  9. MULTI-VITAMIN [Concomitant]
  10. MINERAL OIL [Concomitant]

REACTIONS (6)
  - BENIGN INTRACRANIAL HYPERTENSION [None]
  - CONDITION AGGRAVATED [None]
  - DIPLOPIA [None]
  - HEADACHE [None]
  - SEBORRHOEIC DERMATITIS [None]
  - SINUS DISORDER [None]
